FAERS Safety Report 26065010 (Version 1)
Quarter: 2025Q4

REPORT INFORMATION
  Report Type: Spontaneous
  Country: CN (occurrence: CN)
  Receive Date: 20251119
  Receipt Date: 20251119
  Transmission Date: 20260118
  Serious: Yes (Other)
  Sender: GILEAD
  Company Number: CN-GILEAD-2025-0734162

PATIENT

DRUGS (1)
  1. VEMLIDY [Suspect]
     Active Substance: TENOFOVIR ALAFENAMIDE FUMARATE
     Indication: Product used for unknown indication
     Dosage: ONE PILL EACH TIME (FOLLOWING LUNCH)
     Route: 048
     Dates: start: 202204, end: 202305

REACTIONS (7)
  - Haematochezia [Unknown]
  - Dyspepsia [Recovered/Resolved]
  - Mucous stools [Recovered/Resolved]
  - Dyschezia [Unknown]
  - Gastrointestinal motility disorder [Not Recovered/Not Resolved]
  - Rectal prolapse [Not Recovered/Not Resolved]
  - Perineal disorder [Not Recovered/Not Resolved]
